FAERS Safety Report 7878008-3 (Version None)
Quarter: 2011Q4

REPORT INFORMATION
  Report Type: 
  Country: None (occurrence: None)
  Receive Date: 20111031
  Receipt Date: 20111020
  Transmission Date: 20120403
  Serious: Yes (Other)
  Sender: FDA-Public Use
  Company Number: US-RB-033369-11

PATIENT
  Age: 53 Year
  Sex: Female

DRUGS (2)
  1. SUBOXONE [Suspect]
     Indication: DRUG DEPENDENCE
     Dosage: 4.6 MG/DAILY
     Route: 060
     Dates: start: 20101001, end: 20110101
  2. SUBOXONE [Suspect]
     Indication: DRUG DEPENDENCE
     Dosage: 4-6 MG/DAILY
     Route: 060
     Dates: start: 20080101, end: 20101001

REACTIONS (1)
  - TONGUE NEOPLASM MALIGNANT STAGE UNSPECIFIED [None]
